FAERS Safety Report 10964808 (Version 2)
Quarter: 2015Q3

REPORT INFORMATION
  Report Type: Report from Study
  Country: US (occurrence: US)
  Receive Date: 20150330
  Receipt Date: 20150702
  Transmission Date: 20151125
  Serious: No
  Sender: FDA-Public Use
  Company Number: US-AMGEN-USASL2015028353

PATIENT
  Age: 35 Year
  Sex: Female

DRUGS (1)
  1. ENBREL [Suspect]
     Active Substance: ETANERCEPT
     Indication: PSORIASIS
     Dosage: 50 MG, 2 TIMES/WK
     Route: 065
     Dates: start: 20141122, end: 201505

REACTIONS (4)
  - Headache [Recovered/Resolved]
  - Night sweats [Recovered/Resolved]
  - Skin disorder [Not Recovered/Not Resolved]
  - Psoriasis [Not Recovered/Not Resolved]

NARRATIVE: CASE EVENT DATE: 201502
